FAERS Safety Report 7208378-0 (Version None)
Quarter: 2011Q1

REPORT INFORMATION
  Report Type: 
  Country: None (occurrence: None)
  Receive Date: 20110104
  Receipt Date: 20101223
  Transmission Date: 20110831
  Serious: Yes (Hospitalization)
  Sender: FDA-Public Use
  Company Number: PHHY2010TR87625

PATIENT
  Sex: Female
  Weight: 90 kg

DRUGS (2)
  1. ACLASTA [Suspect]
     Dosage: 5 MG
     Route: 042
  2. NOVOMIKS [Concomitant]

REACTIONS (1)
  - BLOOD GLUCOSE INCREASED [None]
